FAERS Safety Report 6496151-0 (Version None)
Quarter: 2009Q4

REPORT INFORMATION
  Report Type: 
  Country: None (occurrence: None)
  Receive Date: 20091214
  Receipt Date: 20091006
  Transmission Date: 20100525
  Serious: No
  Sender: FDA-Public Use
  Company Number: US-BRISTOL-MYERS SQUIBB COMPANY-14808497

PATIENT

DRUGS (1)
  1. ABILIFY [Suspect]

REACTIONS (3)
  - AGITATION [None]
  - ANXIETY [None]
  - DYSPNOEA [None]
